FAERS Safety Report 6191082-8 (Version None)
Quarter: 2009Q2

REPORT INFORMATION
  Report Type: 
  Country: None (occurrence: None)
  Receive Date: 20090513
  Receipt Date: 20090513
  Transmission Date: 20091009
  Serious: No
  Sender: FDA-Public Use
  Company Number: None

PATIENT
  Age: 1 Month
  Sex: Female
  Weight: 3.6288 kg

DRUGS (1)
  1. NYSTATIN [Suspect]
     Indication: CANDIDIASIS
     Dosage: 2CC TO INSIDE OF EACH CHEEK 4X DAILY PO
     Route: 048
     Dates: start: 20090331, end: 20090410

REACTIONS (8)
  - ANOREXIA [None]
  - CONSTIPATION [None]
  - DIARRHOEA [None]
  - GROWTH RETARDATION [None]
  - IRRITABILITY [None]
  - MEDICATION ERROR [None]
  - VOMITING [None]
  - WEIGHT DECREASED [None]
